FAERS Safety Report 7913956-7 (Version None)
Quarter: 2011Q4

REPORT INFORMATION
  Report Type: 
  Country: None (occurrence: None)
  Receive Date: 20111115
  Receipt Date: 20110811
  Transmission Date: 20120403
  Serious: Yes (Hospitalization)
  Sender: FDA-Public Use
  Company Number: US-ACTELION-A-US2011-51591

PATIENT

DRUGS (9)
  1. SSRI [Concomitant]
  2. EPOPROSTENOL SODIUM [Suspect]
     Indication: PULMONARY ARTERIAL HYPERTENSION
     Dosage: 12 NG/KG, PER MIN
     Route: 042
     Dates: start: 20110708, end: 20110920
  3. TRACLEER [Suspect]
     Dosage: 62.5 MG, BID
     Route: 048
     Dates: start: 20031101
  4. COUMADIN [Concomitant]
  5. DIGOXIN [Concomitant]
  6. TRACLEER [Suspect]
     Indication: PULMONARY ARTERIAL HYPERTENSION
     Dosage: 125 MG, BID
     Route: 048
     Dates: start: 20031205
  7. REVATIO [Concomitant]
  8. VENTAVIS [Suspect]
     Indication: PULMONARY ARTERIAL HYPERTENSION
     Dosage: UNK
     Route: 055
     Dates: start: 20051212, end: 20110712
  9. CALCIUM CHANNEL BLOCKERS [Concomitant]

REACTIONS (4)
  - DISEASE PROGRESSION [None]
  - CARDIAC FAILURE [None]
  - PULMONARY ARTERIAL HYPERTENSION [None]
  - DYSPNOEA [None]
